FAERS Safety Report 14594526 (Version 1)
Quarter: 2018Q1

REPORT INFORMATION
  Report Type: Spontaneous
  Country: IT (occurrence: IT)
  Receive Date: 20180302
  Receipt Date: 20180302
  Transmission Date: 20180509
  Serious: Yes (Life-Threatening)
  Sender: FDA-Public Use
  Company Number: IT-TEVA-2018-IT-860816

PATIENT
  Age: 52 Year
  Sex: Female

DRUGS (1)
  1. CARBOPLATINO TEVA 10 MG/ML [Suspect]
     Active Substance: CARBOPLATIN
     Indication: UTERINE CANCER
     Dates: start: 20171127, end: 20171218

REACTIONS (6)
  - Idiosyncratic drug reaction [Recovered/Resolved]
  - Muscle rigidity [Recovered/Resolved]
  - Dyspnoea [Recovered/Resolved]
  - Hypoxia [Recovered/Resolved]
  - Presyncope [Recovered/Resolved]
  - Vasoconstriction [Recovered/Resolved]

NARRATIVE: CASE EVENT DATE: 20171218
